FAERS Safety Report 5410961-X (Version None)
Quarter: 2007Q3

REPORT INFORMATION
  Report Type: 
  Country: None (occurrence: None)
  Receive Date: 20070810
  Receipt Date: 20070731
  Transmission Date: 20080115
  Serious: Yes (Other)
  Sender: FDA-Public Use
  Company Number: US-BAYER-200714433GDS

PATIENT

DRUGS (2)
  1. NIFEDIPINE VIA MOTHER [Suspect]
     Indication: TOCOLYSIS
     Route: 048
  2. NIFEDIPINE VIA MOTHER [Suspect]
     Route: 064

REACTIONS (3)
  - INTRAVENTRICULAR HAEMORRHAGE NEONATAL [None]
  - NEONATAL RESPIRATORY DISTRESS SYNDROME [None]
  - SEPSIS NEONATAL [None]
